FAERS Safety Report 26212764 (Version 1)
Quarter: 2025Q4

REPORT INFORMATION
  Report Type: Spontaneous
  Country: US (occurrence: US)
  Receive Date: 20251230
  Receipt Date: 20251230
  Transmission Date: 20260117
  Serious: No
  Sender: ELI LILLY AND COMPANY
  Company Number: US-ELI_LILLY_AND_COMPANY-US202512022927

PATIENT
  Age: 60 Year
  Sex: Female

DRUGS (1)
  1. VERZENIO [Suspect]
     Active Substance: ABEMACICLIB
     Indication: Breast cancer female
     Dosage: 50 MG, BID
     Route: 048

REACTIONS (8)
  - Tenderness [Unknown]
  - Ear dryness [Unknown]
  - Dysuria [Unknown]
  - Dry skin [Unknown]
  - Rash pruritic [Unknown]
  - Pain [Unknown]
  - Neutrophil count decreased [Unknown]
  - Nausea [Unknown]
